FAERS Safety Report 11123620 (Version 1)
Quarter: 2015Q2

REPORT INFORMATION
  Report Type: Spontaneous
  Country: US (occurrence: US)
  Receive Date: 20150519
  Receipt Date: 20150519
  Transmission Date: 20150821
  Serious: Yes (Other)
  Sender: FDA-Public Use
  Company Number: US-ABBVIE-15P-163-1389629-00

PATIENT
  Sex: Female

DRUGS (1)
  1. SYNTHROID [Suspect]
     Active Substance: LEVOTHYROXINE SODIUM
     Indication: PRODUCT USED FOR UNKNOWN INDICATION
     Route: 065

REACTIONS (10)
  - Knee operation [Unknown]
  - Upper respiratory tract congestion [Unknown]
  - Muscular weakness [Unknown]
  - Overdose [Unknown]
  - Cough [Unknown]
  - Nail disorder [Unknown]
  - Palpitations [Unknown]
  - Anxiety [Unknown]
  - Back disorder [Unknown]
  - Dyspnoea [Unknown]
